FAERS Safety Report 21664393 (Version 1)
Quarter: 2022Q4

REPORT INFORMATION
  Report Type: Spontaneous
  Country: AU (occurrence: AU)
  Receive Date: 20221130
  Receipt Date: 20221130
  Transmission Date: 20230112
  Serious: Yes (Other)
  Sender: FDA-Public Use
  Company Number: AU-SLATE RUN PHARMACEUTICALS-22AU001423

PATIENT

DRUGS (12)
  1. VORICONAZOLE [Suspect]
     Active Substance: VORICONAZOLE
     Indication: Infective keratitis
     Dosage: 200 MILLIGRAM, QD
     Route: 048
  2. VORICONAZOLE [Suspect]
     Active Substance: VORICONAZOLE
     Indication: Eye infection fungal
     Dosage: UNK
     Route: 003
  3. VORICONAZOLE [Suspect]
     Active Substance: VORICONAZOLE
     Indication: Eye infection fungal
     Dosage: 400 MILLIGRAM, BID
     Route: 048
  4. VORICONAZOLE [Suspect]
     Active Substance: VORICONAZOLE
     Dosage: UNK
  5. VANCOMYCIN HYDROCHLORIDE [Suspect]
     Active Substance: VANCOMYCIN HYDROCHLORIDE
     Indication: Infective keratitis
  6. AMPHOTERICIN B [Suspect]
     Active Substance: AMPHOTERICIN B
     Indication: Eye infection fungal
     Dosage: UNK
  7. CHLORAMPHENICOL [Concomitant]
     Active Substance: CHLORAMPHENICOL
     Indication: Eye irritation
     Route: 003
  8. FLUOROMETHOLONE [Concomitant]
     Active Substance: FLUOROMETHOLONE
     Indication: Eye irritation
  9. OFLOXACIN [Concomitant]
     Active Substance: OFLOXACIN
     Indication: Product used for unknown indication
     Route: 003
  10. OFLOXACIN [Concomitant]
     Active Substance: OFLOXACIN
     Indication: Postoperative care
  11. DOXYCYCLINE [Concomitant]
     Active Substance: DOXYCYCLINE
     Indication: Product used for unknown indication
     Dosage: 100 MILLIGRAM, QD
     Route: 048
  12. CEFTAZIDIME [Concomitant]
     Active Substance: CEFTAZIDIME
     Indication: Infective keratitis

REACTIONS (12)
  - Glaucoma [Recovering/Resolving]
  - Retinopathy [Recovering/Resolving]
  - Vitreous abscess [Recovering/Resolving]
  - Diabetic retinopathy [Recovering/Resolving]
  - Choroidal detachment [Unknown]
  - Corneal lesion [Unknown]
  - Retinal detachment [Unknown]
  - Atrophy of globe [Unknown]
  - Renal impairment [Unknown]
  - Hepatic function abnormal [Unknown]
  - Off label use [Unknown]
  - Treatment failure [Unknown]
